FAERS Safety Report 6423320-8 (Version None)
Quarter: 2009Q4

REPORT INFORMATION
  Report Type: 
  Country: None (occurrence: None)
  Receive Date: 20091102
  Receipt Date: 20091020
  Transmission Date: 20100525
  Serious: Yes (Other)
  Sender: FDA-Public Use
  Company Number: TR-ELI_LILLY_AND_COMPANY-TR200907006407

PATIENT
  Age: 40 Year
  Sex: Female

DRUGS (4)
  1. HUMULIN R [Suspect]
     Indication: GESTATIONAL DIABETES
     Dosage: UNK UNK, 3/D
     Route: 058
     Dates: start: 20090321
  2. HUMULIN N [Suspect]
     Indication: GESTATIONAL DIABETES
     Dosage: 10 U, DAILY (1/D)
     Route: 058
     Dates: start: 20090321
  3. ELEVIT [Concomitant]
     Dosage: 1 D/F, DAILY (1/D)
     Dates: start: 20090321
  4. FERRIC HYDROXIDE POLYMALTOSE COMPLEX [Concomitant]
     Dosage: 1 D/F, DAILY (1/D)
     Dates: start: 20090321

REACTIONS (2)
  - DRUG EXPOSURE DURING PREGNANCY [None]
  - PRE-ECLAMPSIA [None]
